FAERS Safety Report 9914569 (Version 3)
Quarter: 2014Q4

REPORT INFORMATION
  Report Type: Spontaneous
  Country: US (occurrence: US)
  Receive Date: 20140220
  Receipt Date: 20141002
  Transmission Date: 20150529
  Serious: Yes (Hospitalization, Other)
  Sender: FDA-Public Use
  Company Number: US-AMGEN-USASP2014011669

PATIENT
  Age: 69 Year
  Sex: Female

DRUGS (1)
  1. ENBREL [Suspect]
     Active Substance: ETANERCEPT
     Indication: RHEUMATOID ARTHRITIS
     Dosage: 50 MG, ONCE EVERY 11 DAYS
     Route: 065
     Dates: start: 20130201

REACTIONS (7)
  - Abdominal pain [Recovered/Resolved]
  - Pancreatitis [Not Recovered/Not Resolved]
  - Vomiting [Recovered/Resolved]
  - Bile duct stone [Recovered/Resolved]
  - Retroperitoneal haemorrhage [Not Recovered/Not Resolved]
  - Bile duct obstruction [Recovered/Resolved]
  - Rheumatoid arthritis [Not Recovered/Not Resolved]

NARRATIVE: CASE EVENT DATE: 201402
